FAERS Safety Report 23444343 (Version 1)
Quarter: 2024Q1

REPORT INFORMATION
  Report Type: Spontaneous
  Country: US (occurrence: None)
  Receive Date: 20240125
  Receipt Date: 20240125
  Transmission Date: 20240410
  Serious: Yes (Disabling)
  Sender: FDA-Public Use
  Company Number: None

PATIENT
  Age: 23 Year
  Sex: Female
  Weight: 44.1 kg

DRUGS (3)
  1. HUMIRA [Suspect]
     Active Substance: ADALIMUMAB
     Indication: Rheumatoid arthritis
     Dosage: OTHER QUANTITY : 1 INJECTION(S);?OTHER FREQUENCY : EVERY TWO WEEKS;?OTHER ROUTE : THIGH;?
     Route: 050
     Dates: start: 202401
  2. METOPROLOL [Concomitant]
     Active Substance: METOPROLOL
  3. PEPCID [Concomitant]
     Active Substance: FAMOTIDINE

REACTIONS (15)
  - Myalgia [None]
  - Arthralgia [None]
  - Neuralgia [None]
  - Headache [None]
  - Fatigue [None]
  - Angina pectoris [None]
  - Palpitations [None]
  - Chest pain [None]
  - Asthma [None]
  - Parosmia [None]
  - Mood altered [None]
  - Euphoric mood [None]
  - Anxiety [None]
  - Irritability [None]
  - COVID-19 [None]

NARRATIVE: CASE EVENT DATE: 20240104
